FAERS Safety Report 7844233-0 (Version None)
Quarter: 2011Q4

REPORT INFORMATION
  Report Type: 
  Country: None (occurrence: None)
  Receive Date: 20111025
  Receipt Date: 20111011
  Transmission Date: 20120403
  Serious: Yes (Other)
  Sender: FDA-Public Use
  Company Number: US-ELI_LILLY_AND_COMPANY-US201106000218

PATIENT
  Sex: Female
  Weight: 55 kg

DRUGS (3)
  1. FORTEO [Suspect]
     Dosage: 20 UG, QD
     Route: 058
     Dates: start: 20110529, end: 20110613
  2. FORTEO [Suspect]
     Dosage: 20 UG, QD
  3. FORTEO [Suspect]
     Indication: OSTEOPOROSIS
     Dosage: 20 UG, QD
     Route: 058
     Dates: start: 20110520, end: 20110525

REACTIONS (7)
  - CONVULSION [None]
  - VISUAL IMPAIRMENT [None]
  - DRUG DOSE OMISSION [None]
  - INTERVERTEBRAL DISC DISORDER [None]
  - PARTIAL SEIZURES [None]
  - SCOLIOSIS [None]
  - NERVE INJURY [None]
